FAERS Safety Report 19083928 (Version 6)
Quarter: 2021Q3

REPORT INFORMATION
  Report Type: Report from Study
  Country: US (occurrence: US)
  Receive Date: 20210401
  Receipt Date: 20210909
  Transmission Date: 20211014
  Serious: Yes (Hospitalization, Other)
  Sender: FDA-Public Use
  Company Number: NVSC2021US068922

PATIENT
  Sex: Male

DRUGS (1)
  1. PROMACTA [Suspect]
     Active Substance: ELTROMBOPAG OLAMINE
     Indication: PRODUCT USED FOR UNKNOWN INDICATION
     Dosage: UNK
     Route: 048

REACTIONS (15)
  - Product supply issue [Unknown]
  - Abdominal pain [Unknown]
  - Infection [Unknown]
  - Kidney infection [Unknown]
  - Dysphagia [Unknown]
  - Weight decreased [Unknown]
  - Rash [Unknown]
  - Product dose omission issue [Unknown]
  - Renal failure [Unknown]
  - Urinary tract infection [Unknown]
  - Eating disorder [Unknown]
  - Constipation [Unknown]
  - Asthenia [Unknown]
  - Pyrexia [Unknown]
  - Cerebrovascular accident [Unknown]
